FAERS Safety Report 13724055 (Version 1)
Quarter: 2017Q3

REPORT INFORMATION
  Report Type: Spontaneous
  Country: US (occurrence: US)
  Receive Date: 20170706
  Receipt Date: 20170706
  Transmission Date: 20171127
  Serious: No
  Sender: FDA-Public Use
  Company Number: US-JNJFOC-20170403931

PATIENT
  Sex: Female
  Weight: 53.07 kg

DRUGS (3)
  1. REMICADE [Suspect]
     Active Substance: INFLIXIMAB
     Indication: CROHN^S DISEASE
     Route: 042
  2. PREDNISONE. [Concomitant]
     Active Substance: PREDNISONE
     Dosage: THREE TIMES A DAY FOR 2 WEEKS THEN TWO TIMES A WEEK THEN ONCE DAILY DOSE
     Route: 048
  3. VICODIN [Concomitant]
     Active Substance: ACETAMINOPHEN\HYDROCODONE BITARTRATE
     Indication: PAIN
     Route: 048

REACTIONS (7)
  - Abdominal pain upper [Unknown]
  - Hypophagia [Unknown]
  - Frequent bowel movements [Unknown]
  - Weight decreased [Unknown]
  - Abdominal pain [Unknown]
  - Faeces soft [Unknown]
  - Retching [Unknown]
